FAERS Safety Report 20032346 (Version 1)
Quarter: 2021Q4

REPORT INFORMATION
  Report Type: Spontaneous
  Country: US (occurrence: US)
  Receive Date: 20211103
  Receipt Date: 20211103
  Transmission Date: 20220303
  Serious: No
  Sender: FDA-Public Use
  Company Number: US-ALLERGAN-2121216US

PATIENT
  Sex: Male

DRUGS (1)
  1. VRAYLAR [Suspect]
     Active Substance: CARIPRAZINE
     Indication: Product used for unknown indication
     Dosage: UNK, SINGLE
     Dates: start: 202105

REACTIONS (4)
  - Inappropriate schedule of product administration [Unknown]
  - Arthralgia [Unknown]
  - Restlessness [Unknown]
  - Pain in extremity [Unknown]
